FAERS Safety Report 24036191 (Version 1)
Quarter: 2024Q3

REPORT INFORMATION
  Report Type: Spontaneous
  Country: US (occurrence: US)
  Receive Date: 20240701
  Receipt Date: 20240701
  Transmission Date: 20241016
  Serious: No
  Sender: BRISTOL MYERS SQUIBB
  Company Number: US-BRISTOL-MYERS SQUIBB COMPANY-2024-104908

PATIENT
  Age: 44 Year
  Sex: Male

DRUGS (6)
  1. REVLIMID [Suspect]
     Active Substance: LENALIDOMIDE
     Indication: Diffuse large B-cell lymphoma
     Route: 048
     Dates: start: 20240628
  2. ACYCLOVIR [Concomitant]
     Active Substance: ACYCLOVIR
     Indication: Performance enhancing product use
  3. VITAMINS NOS [Concomitant]
     Active Substance: VITAMINS
     Indication: Performance enhancing product use
  4. ERGOCALCIFEROL [Concomitant]
     Active Substance: ERGOCALCIFEROL
     Indication: Performance enhancing product use
     Dosage: 1000 UNITS
  5. CIALIS [Concomitant]
     Active Substance: TADALAFIL
     Indication: Performance enhancing product use
  6. MONJUVI [Concomitant]
     Active Substance: TAFASITAMAB-CXIX
     Indication: Performance enhancing product use

REACTIONS (1)
  - Off label use [Unknown]

NARRATIVE: CASE EVENT DATE: 20240628
